FAERS Safety Report 16810587 (Version 1)
Quarter: 2019Q3

REPORT INFORMATION
  Report Type: Spontaneous
  Country: US (occurrence: US)
  Receive Date: 20190916
  Receipt Date: 20190916
  Transmission Date: 20191005
  Serious: Yes (Hospitalization, Other)
  Sender: FDA-Public Use
  Company Number: US-PENTEC HEALTH-2019PEN00053

PATIENT
  Age: 32 Year
  Sex: Female
  Weight: 54.4 kg

DRUGS (1)
  1. BUPIVACAINE HYDROCHLORIDE. [Suspect]
     Active Substance: BUPIVACAINE HYDROCHLORIDE
     Indication: HEADACHE
     Dosage: 9 ML, ONCE (0.75%; 67.5 MG)
     Route: 065

REACTIONS (7)
  - Local anaesthetic systemic toxicity [Recovering/Resolving]
  - Incorrect route of product administration [Recovered/Resolved]
  - Cyanosis [Unknown]
  - Pulseless electrical activity [Unknown]
  - Electroencephalogram abnormal [Unknown]
  - Seizure [Recovering/Resolving]
  - Unresponsive to stimuli [Unknown]
